FAERS Safety Report 6239638-8 (Version None)
Quarter: 2009Q2

REPORT INFORMATION
  Report Type: 
  Country: None (occurrence: None)
  Receive Date: 20090619
  Receipt Date: 20090608
  Transmission Date: 20091009
  Serious: Yes (Death, Hospitalization)
  Sender: FDA-Public Use
  Company Number: 006759

PATIENT
  Age: 50 Year
  Sex: Male

DRUGS (5)
  1. BUSULFEX [Suspect]
     Indication: STEM CELL TRANSPLANT
     Dosage: INTRAVENOUS
     Route: 042
     Dates: start: 20060101, end: 20060101
  2. CYCLOPHOSPHAMIDE [Suspect]
     Indication: STEM CELL TRANSPLANT
     Dates: start: 20060101, end: 20060101
  3. CAMPATH [Concomitant]
  4. TACROLIMUS [Concomitant]
  5. METHOTREXATE [Concomitant]

REACTIONS (20)
  - ACUTE GRAFT VERSUS HOST DISEASE [None]
  - ASCITES [None]
  - CALCULUS URINARY [None]
  - CYSTITIS HAEMORRHAGIC [None]
  - CYTOMEGALOVIRUS COLITIS [None]
  - CYTOMEGALOVIRUS VIRAEMIA [None]
  - HAEMODIALYSIS [None]
  - HEPATIC NECROSIS [None]
  - HEPATORENAL SYNDROME [None]
  - HYDRONEPHROSIS [None]
  - MICROANGIOPATHY [None]
  - POLYOMAVIRUS-ASSOCIATED NEPHROPATHY [None]
  - PROTEINURIA [None]
  - PSEUDOMONAL SEPSIS [None]
  - RENAL FAILURE [None]
  - RENAL FAILURE CHRONIC [None]
  - STEM CELL TRANSPLANT [None]
  - THROMBOCYTOPENIA [None]
  - THROMBOTIC MICROANGIOPATHY [None]
  - TUBULOINTERSTITIAL NEPHRITIS [None]
